FAERS Safety Report 8358360 (Version 2)
Quarter: 2014Q3

REPORT INFORMATION
  Report Type: Spontaneous
  Country: JP (occurrence: JP)
  Receive Date: 20120127
  Receipt Date: 20140822
  Transmission Date: 20150326
  Serious: Yes (Hospitalization)
  Sender: FDA-Public Use
  Company Number: JP-ELI_LILLY_AND_COMPANY-JP201201005364

PATIENT
  Age: 75 Year
  Sex: Female

DRUGS (13)
  1. MEDICON [Concomitant]
     Active Substance: DEXTROMETHORPHAN HYDROBROMIDE
     Dosage: 45 MG, UNK
     Route: 048
  2. SEVEN EP [Concomitant]
     Dosage: 1 DF, UNK
     Route: 048
  3. SELBEX [Concomitant]
     Active Substance: TEPRENONE
     Dosage: 1.5 G, UNK
     Route: 048
  4. CISPLATIN. [Concomitant]
     Active Substance: CISPLATIN
     Indication: LUNG ADENOCARCINOMA
     Dosage: UNK
     Route: 065
     Dates: start: 20101129
  5. CODEINE PHOSPHATE [Concomitant]
     Active Substance: CODEINE PHOSPHATE
     Dosage: 60 MG, UNK
     Route: 048
  6. LAXOBERON [Concomitant]
     Active Substance: SODIUM PICOSULFATE
     Dosage: UNK, PRN
     Route: 048
  7. STROCAIN [Concomitant]
     Active Substance: OXETHAZAINE
     Dosage: 15 MG, UNK
     Route: 048
  8. PANVITAN [Concomitant]
     Dosage: 1 G, UNK
     Route: 048
  9. MAGLAX [Concomitant]
     Active Substance: MAGNESIUM OXIDE
     Dosage: 750 MG, UNK
     Route: 048
  10. EMEND [Concomitant]
     Active Substance: APREPITANT
     Dosage: 125 MG, UNK
     Route: 048
  11. ALIMTA [Suspect]
     Active Substance: PEMETREXED DISODIUM
     Indication: LUNG ADENOCARCINOMA
     Dosage: UNK
     Route: 042
     Dates: start: 20101129
  12. GASTER [Concomitant]
     Active Substance: FAMOTIDINE
     Dosage: 20 MG, UNK
     Route: 048
  13. MYSLEE [Concomitant]
     Active Substance: ZOLPIDEM TARTRATE
     Dosage: 5 MG, PRN
     Route: 048

REACTIONS (3)
  - Nausea [Recovered/Resolved]
  - Decreased appetite [Recovered/Resolved]
  - Hyponatraemia [Recovered/Resolved]

NARRATIVE: CASE EVENT DATE: 20101130
